FAERS Safety Report 6088722-0 (Version None)
Quarter: 2009Q1

REPORT INFORMATION
  Report Type: 
  Country: None (occurrence: None)
  Receive Date: 20090220
  Receipt Date: 20090220
  Transmission Date: 20090719
  Serious: Yes (Other)
  Sender: FDA-Public Use
  Company Number: None

PATIENT
  Age: 57 Year
  Sex: Male
  Weight: 88.4514 kg

DRUGS (1)
  1. MECLIZINE [Suspect]
     Indication: VERTIGO
     Dosage: 2  3 TIMES PER DAY
     Dates: start: 20090212, end: 20090217

REACTIONS (2)
  - CONDITION AGGRAVATED [None]
  - VERTIGO [None]
